FAERS Safety Report 4294084-1 (Version None)
Quarter: 2004Q1

REPORT INFORMATION
  Report Type: 
  Country: None (occurrence: None)
  Receive Date: 20040211
  Receipt Date: 20040127
  Transmission Date: 20041129
  Serious: Yes (Death, Hospitalization)
  Sender: FDA-Public Use
  Company Number: 2004EU000240

PATIENT
  Age: 48 Year
  Sex: Male

DRUGS (2)
  1. PROGRAF [Suspect]
     Indication: RENAL TRANSPLANT
     Dosage: UNK, UNK, UNK
     Route: 065
  2. PREDNISOLONE [Concomitant]

REACTIONS (8)
  - BRAIN OEDEMA [None]
  - CAROTID ARTERY THROMBOSIS [None]
  - CEREBRAL INFARCTION [None]
  - CHRONIC SINUSITIS [None]
  - CYTOMEGALOVIRUS INFECTION [None]
  - FUNGAL ABSCESS CENTRAL NERVOUS SYSTEM [None]
  - MENINGITIS [None]
  - TONSILLAR DISORDER [None]
